FAERS Safety Report 10204958 (Version 1)
Quarter: 2014Q2

REPORT INFORMATION
  Report Type: Spontaneous
  Country: DK (occurrence: DK)
  Receive Date: 20140529
  Receipt Date: 20140529
  Transmission Date: 20141212
  Serious: Yes (Hospitalization)
  Sender: FDA-Public Use
  Company Number: DK-ASTRAZENECA-2014SE30096

PATIENT
  Age: 37 Year
  Sex: Female
  Weight: 80 kg

DRUGS (5)
  1. SELO-ZOK [Suspect]
     Indication: ACUTE MYOCARDIAL INFARCTION
     Route: 048
     Dates: start: 20140125, end: 20140128
  2. BRILIQUE [Suspect]
     Indication: ACUTE MYOCARDIAL INFARCTION
     Route: 048
     Dates: start: 20140123, end: 20140128
  3. HJERTEMAGNYL [Concomitant]
     Indication: ACUTE MYOCARDIAL INFARCTION
     Dates: start: 20140123
  4. PANTOLOC [Concomitant]
     Indication: PROPHYLAXIS
     Dates: start: 20140123
  5. ATORVASTATIN [Concomitant]
     Indication: ACUTE MYOCARDIAL INFARCTION
     Dates: start: 20140123

REACTIONS (2)
  - Dermatitis allergic [Recovering/Resolving]
  - Raynaud^s phenomenon [Unknown]
